FAERS Safety Report 4971125-7 (Version None)
Quarter: 2006Q1

REPORT INFORMATION
  Report Type: 
  Country: None (occurrence: None)
  Receive Date: 20060227
  Receipt Date: 20050330
  Transmission Date: 20060701
  Serious: Yes (Other)
  Sender: FDA-Public Use
  Company Number: WAES 0503USA05256

PATIENT
  Sex: Male

DRUGS (2)
  1. ZOCOR [Suspect]
     Indication: HYPERCHOLESTEROLAEMIA
     Dosage: 40 MG/DAILY/PO ; 80 MG/DAILY/PO
     Route: 048
     Dates: end: 20050301
  2. ZOCOR [Suspect]
     Indication: HYPERCHOLESTEROLAEMIA
     Dosage: 40 MG/DAILY/PO ; 80 MG/DAILY/PO
     Route: 048
     Dates: start: 20030301

REACTIONS (1)
  - RHABDOMYOLYSIS [None]
